FAERS Safety Report 15880429 (Version 1)
Quarter: 2019Q1

REPORT INFORMATION
  Report Type: Report from Study
  Country: US (occurrence: US)
  Receive Date: 20190128
  Receipt Date: 20190128
  Transmission Date: 20190417
  Serious: Yes (Hospitalization, Other)
  Sender: FDA-Public Use
  Company Number: US-GILEAD-2019-0386584

PATIENT
  Age: 59 Year

DRUGS (3)
  1. MEROPENEM. [Concomitant]
     Active Substance: MEROPENEM
  2. BETHKIS [Concomitant]
     Active Substance: TOBRAMYCIN
     Dosage: UNK
     Dates: start: 20161013
  3. AZTREONAM LYSINE [Suspect]
     Active Substance: AZTREONAM LYSINE
     Indication: CYSTIC FIBROSIS
     Dosage: 1 VIAL, BID
     Route: 055
     Dates: start: 20160709

REACTIONS (1)
  - Lung transplant [Unknown]

NARRATIVE: CASE EVENT DATE: 20190101
